FAERS Safety Report 18481915 (Version 1)
Quarter: 2020Q4

REPORT INFORMATION
  Report Type: Spontaneous
  Country: GB (occurrence: GB)
  Receive Date: 20201109
  Receipt Date: 20201109
  Transmission Date: 20210114
  Serious: Yes (Hospitalization, Other)
  Sender: FDA-Public Use
  Company Number: GB-TEVA-2020-GB-1845412

PATIENT
  Age: 78 Year
  Sex: Male
  Weight: 74 kg

DRUGS (24)
  1. ALLOPURINOL. [Concomitant]
     Active Substance: ALLOPURINOL
     Dosage: 100 MG
     Dates: start: 20200708
  2. PARACETAMOL [Concomitant]
     Active Substance: ACETAMINOPHEN
     Dosage: 1 TO 2 TABLETS UP TO FOUR TIMES DAILY MAX 8 PER DAY.
     Dates: start: 20200708, end: 20200929
  3. HYLO-FORTE [Concomitant]
     Active Substance: HYALURONATE SODIUM
     Dosage: TO LEFT EYE AS PER INSTRUCTIONS FROM HOSPITAL, UNIT DOSE: 1 DOSAGE FORMS
     Dates: start: 20200708
  4. CETRABEN EMOLLIENT CREAM [Concomitant]
     Dates: start: 20200708
  5. VENTOLIN [Concomitant]
     Active Substance: ALBUTEROL SULFATE
     Dosage: INHALE 1-2 DOSES UP TO 4 TIMES A DAY
     Route: 055
     Dates: start: 20200710
  6. MORPHINE [Concomitant]
     Active Substance: MORPHINE
     Dosage: TAKE 2.5ML UP TO FOUR TIMES A DAY. 10MG/5ML
     Route: 048
     Dates: start: 20200714
  7. CETIRIZINE [Concomitant]
     Active Substance: CETIRIZINE HYDROCHLORIDE
     Dosage: 10 MG
     Dates: start: 20200708
  8. BISOPROLOL [Suspect]
     Active Substance: BISOPROLOL
     Indication: ATRIOVENTRICULAR BLOCK
     Dosage: 2.5 MG
     Route: 048
     Dates: start: 20120620, end: 20200929
  9. DAKTARIN [Concomitant]
     Active Substance: MICONAZOLE NITRATE
     Dosage: FOR ONE WEEK 20MG/G, UNIT DOSE: 4 DOSAGE FORMS
     Route: 050
     Dates: start: 20200907
  10. COLCHICINE. [Concomitant]
     Active Substance: COLCHICINE
     Dosage: FOR 6 DAYS, UNIT DOSE: 500 MICROGRAM
     Dates: start: 20200925
  11. MST CONTINUS [Concomitant]
     Active Substance: MORPHINE SULFATE
     Dosage: 10 MG
     Dates: start: 20200918
  12. FLEXITOL HEEL BALM CREAM [Concomitant]
     Dosage: 2 DOSAGE FORMS
     Dates: start: 20200902
  13. CIPROFLOXACIN. [Concomitant]
     Active Substance: CIPROFLOXACIN
     Dosage: 1000 MG
     Dates: start: 20200716
  14. APIXABAN [Concomitant]
     Active Substance: APIXABAN
     Indication: PLASMA CELL MYELOMA
  15. PERINDOPRIL TERT-BUTYLAMINE [Concomitant]
     Active Substance: PERINDOPRIL ERBUMINE
     Dosage: 4 MG
     Dates: start: 20200708
  16. HYDROMOL OINTMENT [Concomitant]
     Active Substance: PARAFFIN\WAX, EMULSIFYING
     Dates: start: 20200708, end: 20200929
  17. CHLORAMPHENICOL [Concomitant]
     Active Substance: CHLORAMPHENICOL
     Dosage: ONE DROP EVERY TWO HOURS FOR THE FIRST 48 HOURS THEN FOUR TIMES A DAY
     Dates: start: 20200713
  18. AMOXICILLIN. [Concomitant]
     Active Substance: AMOXICILLIN
     Dosage: 1500 MG
     Dates: start: 20200708
  19. ATORVASTATIN [Concomitant]
     Active Substance: ATORVASTATIN
     Dosage: 20 MG
     Dates: start: 20200708
  20. ACICLOVIR [Concomitant]
     Active Substance: ACYCLOVIR
     Indication: PLASMA CELL MYELOMA
  21. OMEPRAZOLE. [Concomitant]
     Active Substance: OMEPRAZOLE
     Dosage: WHEN REQUIRED UNIT DOSE: 20 MG
     Dates: start: 20200708, end: 20200929
  22. POMALIDOMIDE [Concomitant]
     Active Substance: POMALIDOMIDE
     Indication: PLASMA CELL MYELOMA
  23. ZOMORPH [Concomitant]
     Active Substance: MORPHINE SULFATE
     Dosage: 20 MG
     Dates: start: 20200708
  24. LAXIDO [Concomitant]
     Active Substance: POLYETHYLENE GLYCOL 3350\POTASSIUM CHLORIDE\SODIUM BICARBONATE\SODIUM CHLORIDE
     Dosage: TAKE ONE OR TWO SACHETS DAILY
     Route: 048
     Dates: start: 20200708, end: 20200929

REACTIONS (2)
  - Atrioventricular block second degree [Recovered/Resolved]
  - Balance disorder [Recovered/Resolved]

NARRATIVE: CASE EVENT DATE: 20200927
